FAERS Safety Report 6369494-9 (Version None)
Quarter: 2009Q3

REPORT INFORMATION
  Report Type: 
  Country: None (occurrence: None)
  Receive Date: 20090923
  Receipt Date: 20090914
  Transmission Date: 20100115
  Serious: Yes (Hospitalization)
  Sender: FDA-Public Use
  Company Number: DE-JNJFOC-20090107036

PATIENT
  Age: 66 Year
  Sex: Female

DRUGS (8)
  1. INFLIXIMAB [Suspect]
     Indication: RHEUMATOID ARTHRITIS
     Route: 042
     Dates: start: 20040701
  2. ANTIMALARIALS [Concomitant]
  3. AZATHIOPRINE [Concomitant]
  4. AZATHIOPRINE [Concomitant]
  5. RESOCHIN [Concomitant]
  6. SALAGEN [Concomitant]
  7. TILIDIN [Concomitant]
  8. VOLTAREN [Concomitant]

REACTIONS (1)
  - BREAST CANCER STAGE II [None]
